FAERS Safety Report 5396763-1 (Version None)
Quarter: 2007Q3

REPORT INFORMATION
  Report Type: 
  Country: None (occurrence: None)
  Receive Date: 20070725
  Receipt Date: 20070531
  Transmission Date: 20080115
  Serious: Yes (Other)
  Sender: FDA-Public Use
  Company Number: US-PURDUE-USA_2007_0027723

PATIENT
  Sex: Female
  Weight: 72 kg

DRUGS (3)
  1. OXYCONTIN [Suspect]
     Indication: BACK PAIN
     Dosage: 10 MG, TID
     Dates: start: 19980603, end: 20010101
  2. SOMA [Concomitant]
     Dosage: 350 MG, BID
  3. IBUPROFEN [Concomitant]
     Dosage: 800 MG, TID

REACTIONS (8)
  - AMNESIA [None]
  - DRUG DEPENDENCE [None]
  - FEELING ABNORMAL [None]
  - IMMOBILE [None]
  - IMPAIRED DRIVING ABILITY [None]
  - MENTAL IMPAIRMENT [None]
  - PAIN [None]
  - SELF ESTEEM DECREASED [None]
